FAERS Safety Report 17747769 (Version 1)
Quarter: 2020Q2

REPORT INFORMATION
  Report Type: Spontaneous
  Country: US (occurrence: US)
  Receive Date: 20200505
  Receipt Date: 20200505
  Transmission Date: 20200714
  Serious: No
  Sender: FDA-Public Use
  Company Number: US-ROCHE-2257849

PATIENT
  Age: 83 Year
  Sex: Female
  Weight: 72.19 kg

DRUGS (9)
  1. ESBRIET [Suspect]
     Active Substance: PIRFENIDONE
     Indication: IDIOPATHIC PULMONARY FIBROSIS
     Route: 048
  2. AMLODIPINE BENZENESULFONATE [Concomitant]
     Dosage: 5 - 20 MG
     Route: 065
  3. ESBRIET [Suspect]
     Active Substance: PIRFENIDONE
     Dosage: ONGOING: UNKNOWN
     Route: 065
  4. ESBRIET [Suspect]
     Active Substance: PIRFENIDONE
     Dosage: ONGOING: UNKNOWN
     Route: 048
  5. ESBRIET [Suspect]
     Active Substance: PIRFENIDONE
     Route: 065
     Dates: start: 20190101
  6. LOSARTAN POTASSIUM. [Concomitant]
     Active Substance: LOSARTAN POTASSIUM
     Route: 065
  7. PREDNISONE. [Concomitant]
     Active Substance: PREDNISONE
     Route: 065
  8. ESBRIET [Suspect]
     Active Substance: PIRFENIDONE
     Route: 048
     Dates: start: 20181217
  9. ESBRIET [Suspect]
     Active Substance: PIRFENIDONE
     Dosage: THREE PILLS AT MORNING AND NOON; ONGOING: YES
     Route: 048
     Dates: start: 201901

REACTIONS (4)
  - Insomnia [Unknown]
  - Insomnia [Recovering/Resolving]
  - Fatigue [Not Recovered/Not Resolved]
  - Hot flush [Recovered/Resolved with Sequelae]

NARRATIVE: CASE EVENT DATE: 201901
